FAERS Safety Report 16178535 (Version 1)
Quarter: 2019Q2

REPORT INFORMATION
  Report Type: Spontaneous
  Country: US (occurrence: US)
  Receive Date: 20190409
  Receipt Date: 20190409
  Transmission Date: 20190711
  Serious: Yes (Hospitalization)
  Sender: FDA-Public Use
  Company Number: None

PATIENT
  Sex: Male

DRUGS (20)
  1. ATORVASTATIN [Concomitant]
     Active Substance: ATORVASTATIN
  2. METHYLPRED [Concomitant]
     Active Substance: METHYLPREDNISOLONE
  3. FEXOFENADRINE [Concomitant]
  4. HYDROXYZ [Concomitant]
     Active Substance: HYDROXYZINE HYDROCHLORIDE
  5. DICLOFENAC [Concomitant]
     Active Substance: DICLOFENAC
  6. LEVOTHYROXINE. [Concomitant]
     Active Substance: LEVOTHYROXINE
  7. SULFASALAZINE. [Concomitant]
     Active Substance: SULFASALAZINE
  8. BUDESONIDE. [Concomitant]
     Active Substance: BUDESONIDE
  9. VANCOMYCIN [Concomitant]
     Active Substance: VANCOMYCIN
  10. LEFLUNOMIDE. [Concomitant]
     Active Substance: LEFLUNOMIDE
  11. LISINOPRIL. [Concomitant]
     Active Substance: LISINOPRIL
  12. DESVENLAFAX [Concomitant]
  13. FLECTOR [Concomitant]
     Active Substance: DICLOFENAC EPOLAMINE
  14. NOVOLOG [Concomitant]
     Active Substance: INSULIN ASPART
  15. SIMPONI [Suspect]
     Active Substance: GOLIMUMAB
     Indication: PRODUCT USED FOR UNKNOWN INDICATION
     Dosage: ?          OTHER FREQUENCY:Q4WKS;?
     Route: 058
     Dates: start: 20180313
  16. DEXILANT [Concomitant]
     Active Substance: DEXLANSOPRAZOLE
  17. FOLIC ACID. [Concomitant]
     Active Substance: FOLIC ACID
  18. METFORMIN [Concomitant]
     Active Substance: METFORMIN HYDROCHLORIDE
  19. ONDANSETRON [Concomitant]
     Active Substance: ONDANSETRON
  20. TESTOST [Concomitant]

REACTIONS (1)
  - Sinusitis [None]
